FAERS Safety Report 11081804 (Version 1)
Quarter: 2015Q2

REPORT INFORMATION
  Report Type: Report from Study
  Country: IT (occurrence: IT)
  Receive Date: 20150501
  Receipt Date: 20150501
  Transmission Date: 20150821
  Serious: Yes (Death, Other)
  Sender: FDA-Public Use
  Company Number: PHHO2015IT007461

PATIENT

DRUGS (1)
  1. AFINITOR [Suspect]
     Active Substance: EVEROLIMUS
     Indication: THYMOMA
     Route: 048

REACTIONS (2)
  - Acute leukaemia [Unknown]
  - Death [Fatal]

NARRATIVE: CASE EVENT DATE: 20141024
